FAERS Safety Report 6432961-3 (Version None)
Quarter: 2009Q4

REPORT INFORMATION
  Report Type: 
  Country: None (occurrence: None)
  Receive Date: 20091109
  Receipt Date: 20091027
  Transmission Date: 20100525
  Serious: Yes (Hospitalization, Other)
  Sender: FDA-Public Use
  Company Number: US-ELI_LILLY_AND_COMPANY-US200910006997

PATIENT
  Sex: Female

DRUGS (2)
  1. EVISTA [Suspect]
     Dosage: UNK, UNKNOWN
     Route: 065
     Dates: end: 20081001
  2. ANTIBIOTICS [Concomitant]
     Dosage: UNK, AS NEEDED

REACTIONS (3)
  - CEREBRAL ATROPHY [None]
  - MEMORY IMPAIRMENT [None]
  - MYOCARDIAL INFARCTION [None]
